FAERS Safety Report 24535854 (Version 1)
Quarter: 2024Q4

REPORT INFORMATION
  Report Type: Report from Study
  Country: US (occurrence: US)
  Receive Date: 20241022
  Receipt Date: 20241022
  Transmission Date: 20250114
  Serious: Yes (Other)
  Sender: ABBVIE
  Company Number: US-ABBVIE-5971791

PATIENT
  Sex: Male

DRUGS (2)
  1. VENCLEXTA [Suspect]
     Active Substance: VENETOCLAX
     Indication: Mantle cell lymphoma
     Route: 048
     Dates: start: 20240819
  2. BRUKINSA [Concomitant]
     Active Substance: ZANUBRUTINIB
     Indication: Mantle cell lymphoma
     Dates: start: 20240628

REACTIONS (6)
  - Pharyngeal neoplasm [Unknown]
  - Lung neoplasm [Unknown]
  - Dehydration [Unknown]
  - Blood creatinine increased [Unknown]
  - Pancreatic neoplasm [Recovered/Resolved]
  - Neoplasm [Unknown]

NARRATIVE: CASE EVENT DATE: 20240101
